FAERS Safety Report 7241615-5 (Version None)
Quarter: 2011Q1

REPORT INFORMATION
  Report Type: 
  Country: None (occurrence: None)
  Receive Date: 20110114
  Receipt Date: 20101207
  Transmission Date: 20110831
  Serious: Yes (Other)
  Sender: FDA-Public Use
  Company Number: ALA_01475_2011

PATIENT
  Sex: Female

DRUGS (1)
  1. REGLAN [Suspect]
     Indication: PRODUCT USED FOR UNKNOWN INDICATION
     Dosage: (10 MG ORAL)
     Route: 048
     Dates: start: 20050501, end: 20100201

REACTIONS (4)
  - DYSTONIA [None]
  - ECONOMIC PROBLEM [None]
  - DYSARTHRIA [None]
  - EMOTIONAL DISORDER [None]
